FAERS Safety Report 21929547 (Version 1)
Quarter: 2023Q1

REPORT INFORMATION
  Report Type: Spontaneous
  Country: US (occurrence: US)
  Receive Date: 20230131
  Receipt Date: 20230131
  Transmission Date: 20230417
  Serious: No
  Sender: FDA-Public Use
  Company Number: US-UCBSA-2022059572

PATIENT
  Age: 11 Month
  Sex: Female

DRUGS (3)
  1. KEPPRA [Suspect]
     Active Substance: LEVETIRACETAM
     Indication: Seizure
     Dosage: 100 MILLIGRAM PER MILLILITRE 1 ML BID FOR 1 WEEK,
     Route: 048
     Dates: start: 201910
  2. KEPPRA [Suspect]
     Active Substance: LEVETIRACETAM
     Dosage: THEN 2ML BID, ORALLY, EVERY 12 HOURS FOR 30 DAYS,
     Route: 048
     Dates: start: 201910
  3. KEPPRA [Suspect]
     Active Substance: LEVETIRACETAM
     Dosage: 200 MILLIGRAM, 2X/DAY (BID)
     Dates: start: 201912

REACTIONS (1)
  - Somnolence [Unknown]
